FAERS Safety Report 8294455-2 (Version None)
Quarter: 2012Q2

REPORT INFORMATION
  Report Type: 
  Country: None (occurrence: None)
  Receive Date: 20120418
  Receipt Date: 20120416
  Transmission Date: 20120825
  Serious: Yes (Death, Life-Threatening)
  Sender: FDA-Public Use
  Company Number: JP-GENZYME-THYM-1002997

PATIENT
  Sex: Male
  Weight: 60 kg

DRUGS (20)
  1. CARBOCISTEINE [Concomitant]
     Indication: BRONCHITIS
  2. MOSAPRIDE CITRATE [Concomitant]
     Indication: PROPHYLAXIS AGAINST GASTROINTESTINAL ULCER
  3. METHYLPREDNISOLONE SODIUM SUCCINATE [Concomitant]
     Indication: PREMEDICATION
     Dosage: UNK
     Route: 065
     Dates: start: 20101115, end: 20101117
  4. FLUDARA [Suspect]
     Indication: ACUTE MYELOID LEUKAEMIA
     Dosage: 30 MG/M2, QD
     Route: 065
     Dates: start: 20101110, end: 20101114
  5. ESTAZOLAM [Concomitant]
     Indication: ACUTE MYELOID LEUKAEMIA
     Dosage: UNK
     Route: 065
     Dates: start: 20101111, end: 20101127
  6. AMBROXOL HYDROCHLORIDE [Concomitant]
     Indication: ACUTE MYELOID LEUKAEMIA
     Dosage: UNK
     Route: 065
     Dates: start: 20101111, end: 20101127
  7. LANSOPRAZOLE [Concomitant]
     Indication: ACUTE MYELOID LEUKAEMIA
     Dosage: UNK
     Route: 065
     Dates: start: 20101111, end: 20101127
  8. AMBROXOL HYDROCHLORIDE [Concomitant]
     Indication: BRONCHITIS
  9. BUSULFAN [Suspect]
     Indication: ACUTE MYELOID LEUKAEMIA
     Dosage: UNK
     Route: 065
     Dates: start: 20101110, end: 20101114
  10. DIMEMORFAN PHOSPHATE [Concomitant]
     Indication: ACUTE MYELOID LEUKAEMIA
     Dosage: UNK
     Route: 065
     Dates: start: 20101111, end: 20101127
  11. DIMEMORFAN PHOSPHATE [Concomitant]
     Indication: BRONCHITIS
  12. ALUMINIUM HYDROXIDE W [Concomitant]
     Indication: PROPHYLAXIS AGAINST GASTROINTESTINAL ULCER
  13. THYMOGLOBULIN [Suspect]
     Indication: BONE MARROW CONDITIONING REGIMEN
     Dosage: 82.5 MG, QD
     Route: 042
     Dates: start: 20101115, end: 20101115
  14. CARBOCISTEINE [Concomitant]
     Indication: ACUTE MYELOID LEUKAEMIA
     Dosage: UNK
     Route: 065
     Dates: start: 20101111, end: 20101127
  15. MOSAPRIDE CITRATE [Concomitant]
     Indication: ACUTE MYELOID LEUKAEMIA
     Dosage: UNK
     Route: 065
     Dates: start: 20101111, end: 20101127
  16. DEFERASIROX [Concomitant]
     Indication: ACUTE MYELOID LEUKAEMIA
     Dosage: UNK
     Route: 065
     Dates: start: 20101111, end: 20101127
  17. LANSOPRAZOLE [Concomitant]
     Indication: PROPHYLAXIS AGAINST GASTROINTESTINAL ULCER
  18. ESTAZOLAM [Concomitant]
     Indication: INSOMNIA
  19. ALUMINIUM HYDROXIDE W [Concomitant]
     Indication: ACUTE MYELOID LEUKAEMIA
     Dosage: UNK
     Route: 065
     Dates: start: 20101111, end: 20101127
  20. TACROLIMUS [Concomitant]
     Indication: PROPHYLAXIS AGAINST GRAFT VERSUS HOST DISEASE
     Dosage: UNK
     Route: 065
     Dates: start: 20101116, end: 20101117

REACTIONS (2)
  - PSEUDOMONAL SEPSIS [None]
  - NEUTROPENIA [None]
